FAERS Safety Report 11533449 (Version 1)
Quarter: 2015Q3

REPORT INFORMATION
  Report Type: Spontaneous
  Country: None (occurrence: AU)
  Receive Date: 20150921
  Receipt Date: 20150921
  Transmission Date: 20151125
  Serious: Yes (Disabling)
  Sender: FDA-Public Use
  Company Number: AU-MAYNE PHARMA-2015MYN000060

PATIENT
  Sex: Female

DRUGS (18)
  1. BRUFEN                             /00109201/ [Concomitant]
     Active Substance: IBUPROFEN
  2. NATRILIX                           /00340101/ [Concomitant]
  3. DOXYLIN /00055702/ [Suspect]
     Active Substance: DOXYCYCLINE
     Indication: PRODUCT USED FOR UNKNOWN INDICATION
  4. FELDENE [Concomitant]
     Active Substance: PIROXICAM
  5. MERSYNDOL                          /00327201/ [Concomitant]
  6. DEPTRAN /00138002/ [Suspect]
     Active Substance: DOXEPIN HYDROCHLORIDE
     Indication: PRODUCT USED FOR UNKNOWN INDICATION
  7. CARDIZEM [Concomitant]
     Active Substance: DILTIAZEM HYDROCHLORIDE
  8. CLEOCIN [Concomitant]
     Active Substance: CLINDAMYCIN PHOSPHATE
  9. DOXYCYCLINE. [Concomitant]
     Active Substance: DOXYCYCLINE
  10. DALACIN C                          /00166001/ [Concomitant]
  11. RULIDE [Suspect]
     Active Substance: ROXITHROMYCIN
     Indication: PRODUCT USED FOR UNKNOWN INDICATION
  12. SOTALOL HYDROCHLORIDE. [Concomitant]
     Active Substance: SOTALOL HYDROCHLORIDE
  13. CECLOR [Suspect]
     Active Substance: CEFACLOR
     Indication: PRODUCT USED FOR UNKNOWN INDICATION
  14. ERYTHROMYCIN. [Concomitant]
     Active Substance: ERYTHROMYCIN
  15. NITROLINGUAL [Concomitant]
     Active Substance: NITROGLYCERIN
  16. DOXYCYCLINE HYCLATE DELAYED-REL CAPSULES [Suspect]
     Active Substance: DOXYCYCLINE HYCLATE
     Indication: PRODUCT USED FOR UNKNOWN INDICATION
     Dosage: UNK
  17. BISOLVON [Suspect]
     Active Substance: BROMHEXINE HYDROCHLORIDE
     Indication: PRODUCT USED FOR UNKNOWN INDICATION
  18. ASPIRIN                            /00002701/ [Concomitant]
     Active Substance: ASPIRIN

REACTIONS (2)
  - Sinusitis [Unknown]
  - Deafness [Unknown]
